FAERS Safety Report 5654785-7 (Version None)
Quarter: 2008Q1

REPORT INFORMATION
  Report Type: 
  Country: None (occurrence: None)
  Receive Date: 20080307
  Receipt Date: 20070711
  Transmission Date: 20080703
  Serious: No
  Sender: FDA-Public Use
  Company Number: A0663369A

PATIENT
  Age: 42 Year
  Sex: Female

DRUGS (3)
  1. REQUIP [Suspect]
     Indication: RESTLESS LEGS SYNDROME
     Dosage: 1MG PER DAY
     Route: 048
     Dates: start: 20070601
  2. BIRTH CONTROL [Concomitant]
  3. NEURONTIN [Concomitant]

REACTIONS (2)
  - DYSKINESIA [None]
  - RESTLESSNESS [None]
